FAERS Safety Report 10816695 (Version 1)
Quarter: 2015Q1

REPORT INFORMATION
  Report Type: Spontaneous
  Country: US (occurrence: US)
  Receive Date: 20150218
  Receipt Date: 20150218
  Transmission Date: 20150721
  Serious: Yes (Life-Threatening, Hospitalization, Other)
  Sender: FDA-Public Use
  Company Number: US-ACTAVIS-2015-02477

PATIENT
  Age: 26 Year
  Sex: Male

DRUGS (3)
  1. LOPERAMIDE (UNKNOWN) [Suspect]
     Active Substance: LOPERAMIDE
     Indication: DRUG ABUSE
     Dosage: 100-250 MG
     Route: 048
  2. LOPERAMIDE (UNKNOWN) [Interacting]
     Active Substance: LOPERAMIDE
     Indication: DRUG WITHDRAWAL SYNDROME
  3. CIMETIDINE (WATSON LABORATORIES) [Interacting]
     Active Substance: CIMETIDINE
     Indication: DRUG ABUSE
     Dosage: 400 MG, DAILY
     Route: 048

REACTIONS (8)
  - Torsade de pointes [Recovered/Resolved]
  - Intentional overdose [None]
  - Drug interaction [Recovered/Resolved]
  - Overdose [Unknown]
  - Syncope [None]
  - Electrocardiogram QT prolonged [Recovered/Resolved]
  - Constipation [Unknown]
  - Drug abuse [Unknown]
